FAERS Safety Report 15297838 (Version 1)
Quarter: 2018Q3

REPORT INFORMATION
  Report Type: Spontaneous
  Country: HK (occurrence: HK)
  Receive Date: 20180820
  Receipt Date: 20180820
  Transmission Date: 20181010
  Serious: Yes (Hospitalization)
  Sender: FDA-Public Use
  Company Number: HK-MYLANLABS-2018M1062467

PATIENT
  Age: 49 Year
  Sex: Female

DRUGS (7)
  1. OXALIPLATIN. [Suspect]
     Active Substance: OXALIPLATIN
     Indication: ADENOCARCINOMA OF COLON
     Dosage: AT DAY 1 FOR EIGHT CYCLES (ADJUVANT CHEMOTHERAPY WITH CAPECITABINE)
     Route: 065
     Dates: start: 20161024
  2. OXALIPLATIN. [Suspect]
     Active Substance: OXALIPLATIN
     Dosage: 85 MG/M2 AT DAY 1 (AS A PART OF FOLFOX REGIMEN)
     Route: 065
  3. PIPERACILLIN/TAZOBACTAM [Concomitant]
     Active Substance: PIPERACILLIN SODIUM\TAZOBACTAM SODIUM
     Indication: PRODUCT USED FOR UNKNOWN INDICATION
     Route: 042
  4. CAPECITABINE. [Suspect]
     Active Substance: CAPECITABINE
     Indication: ADENOCARCINOMA OF COLON
     Dosage: ADJUVANT CHEMOTHERAPY
     Route: 048
     Dates: start: 20161024
  5. FLUOROURACIL. [Suspect]
     Active Substance: FLUOROURACIL
     Dosage: 600 MG/M2 AT 22 HOURS AT DAY 1 AND 2
     Route: 041
     Dates: start: 20170104
  6. FLUOROURACIL. [Suspect]
     Active Substance: FLUOROURACIL
     Indication: ADENOCARCINOMA OF COLON
     Dosage: 400MG /M2 AT DAY 1 AND 2
     Route: 040
     Dates: start: 20170104
  7. LEUCOVORIN                         /00566701/ [Concomitant]
     Active Substance: LEUCOVORIN
     Indication: ADENOCARCINOMA OF COLON
     Dosage: 200 MG/M2 AT DAY 1 AND 2
     Route: 065

REACTIONS (5)
  - Diarrhoea [Unknown]
  - Dihydropyrimidine dehydrogenase deficiency [Unknown]
  - Neutropenia [Unknown]
  - Bone marrow failure [Unknown]
  - Pyrexia [Unknown]

NARRATIVE: CASE EVENT DATE: 20161105
